FAERS Safety Report 16937416 (Version 1)
Quarter: 2019Q4

REPORT INFORMATION
  Report Type: Spontaneous
  Country: US (occurrence: US)
  Receive Date: 20191018
  Receipt Date: 20191018
  Transmission Date: 20200122
  Serious: No
  Sender: FDA-Public Use
  Company Number: US-PFIZER INC-2019451017

PATIENT
  Age: 72 Year
  Sex: Female
  Weight: 104.33 kg

DRUGS (1)
  1. CHANTIX [Suspect]
     Active Substance: VARENICLINE TARTRATE
     Indication: SMOKING CESSATION THERAPY
     Dosage: 5 MG, UNK
     Route: 048

REACTIONS (4)
  - Drug intolerance [Unknown]
  - Epistaxis [Unknown]
  - Abnormal dreams [Unknown]
  - Incorrect dose administered [Unknown]
